FAERS Safety Report 13583506 (Version 1)
Quarter: 2017Q2

REPORT INFORMATION
  Report Type: Report from Study
  Country: None (occurrence: BR)
  Receive Date: 20170526
  Receipt Date: 20170526
  Transmission Date: 20170830
  Serious: Yes (Hospitalization, Congenital Anomaly, Other)
  Sender: FDA-Public Use
  Company Number: BR-ABBVIE-17K-020-1983888-00

PATIENT
  Age: 31 Year
  Sex: Male
  Weight: 58 kg

DRUGS (5)
  1. HUMIRA [Suspect]
     Active Substance: ADALIMUMAB
     Route: 058
     Dates: start: 2016, end: 201611
  2. HUMIRA [Suspect]
     Active Substance: ADALIMUMAB
     Indication: CROHN^S DISEASE
     Dosage: LOADING DOSE, WEEK 0
     Route: 058
     Dates: start: 20160621, end: 20160621
  3. AZATHIOPRINE. [Concomitant]
     Active Substance: AZATHIOPRINE
     Indication: CROHN^S DISEASE
     Route: 048
     Dates: start: 2016
  4. HUMIRA [Suspect]
     Active Substance: ADALIMUMAB
     Dosage: LOADING DOSE, WEEK 2
     Route: 058
     Dates: start: 2016, end: 2016
  5. AZATHIOPRINE. [Concomitant]
     Active Substance: AZATHIOPRINE
     Route: 048
     Dates: start: 2016

REACTIONS (8)
  - Lymph node tuberculosis [Recovering/Resolving]
  - Pulmonary mass [Unknown]
  - Crohn^s disease [Unknown]
  - Gastrointestinal stoma complication [Recovered/Resolved]
  - Infection [Recovering/Resolving]
  - Intestinal tuberculosis [Recovering/Resolving]
  - Gastrointestinal perforation [Recovering/Resolving]
  - Cardiac arrest [Recovering/Resolving]

NARRATIVE: CASE EVENT DATE: 201607
